FAERS Safety Report 11204692 (Version 2)
Quarter: 2015Q4

REPORT INFORMATION
  Report Type: Report from Study
  Country: ES (occurrence: ES)
  Receive Date: 20150622
  Receipt Date: 20151016
  Transmission Date: 20160304
  Serious: Yes (Death, Life-Threatening)
  Sender: FDA-Public Use
  Company Number: ES-ROCHE-1596523

PATIENT
  Age: 48 Year
  Sex: Male
  Weight: 110 kg

DRUGS (1)
  1. BEVACIZUMAB [Suspect]
     Active Substance: BEVACIZUMAB
     Indication: COLORECTAL CANCER
     Route: 065
     Dates: start: 20141030, end: 20150223

REACTIONS (3)
  - Infection [Fatal]
  - General physical health deterioration [Fatal]
  - Tumour perforation [Recovered/Resolved]

NARRATIVE: CASE EVENT DATE: 20150226
